FAERS Safety Report 7460237-4 (Version None)
Quarter: 2011Q2

REPORT INFORMATION
  Report Type: 
  Country: None (occurrence: None)
  Receive Date: 20110505
  Receipt Date: 20110428
  Transmission Date: 20111010
  Serious: Yes (Other)
  Sender: FDA-Public Use
  Company Number: CA-ROCHE-774078

PATIENT
  Sex: Female

DRUGS (5)
  1. ZOLOFT [Concomitant]
  2. LIPIDIL [Concomitant]
  3. TEGRETOL [Concomitant]
     Dates: start: 20110425
  4. TEMOZOLOMIDE [Concomitant]
  5. BEVACIZUMAB [Suspect]
     Indication: GLIOBLASTOMA
     Dosage: DOSE VARIED BETWEEN 480MG, 500MG AND 510MG. FORM:INFUSION
     Route: 042
     Dates: start: 20101215

REACTIONS (2)
  - RASH PRURITIC [None]
  - CONVULSION [None]
